FAERS Safety Report 5596330-0 (Version None)
Quarter: 2008Q1

REPORT INFORMATION
  Report Type: 
  Country: None (occurrence: None)
  Receive Date: 20080118
  Receipt Date: 20080116
  Transmission Date: 20080703
  Serious: Yes (Other)
  Sender: FDA-Public Use
  Company Number: CA-MERCK-0801CAN00152

PATIENT
  Age: 50 Year
  Sex: Male
  Weight: 99 kg

DRUGS (1)
  1. ZETIA [Suspect]
     Route: 048

REACTIONS (7)
  - APPETITE DISORDER [None]
  - BLOOD CHOLESTEROL INCREASED [None]
  - DEPRESSION [None]
  - DRUG INEFFECTIVE [None]
  - THROMBOCYTOPENIA [None]
  - WEIGHT INCREASED [None]
  - WITHDRAWAL SYNDROME [None]
